FAERS Safety Report 4335385-8 (Version None)
Quarter: 2004Q2

REPORT INFORMATION
  Report Type: 
  Country: None (occurrence: None)
  Receive Date: 20040408
  Receipt Date: 20040408
  Transmission Date: 20050107
  Serious: Yes (Life-Threatening, Hospitalization)
  Sender: FDA-Public Use
  Company Number: None

PATIENT
  Sex: Female

DRUGS (8)
  1. HEPARIN [Suspect]
     Indication: ANTICOAGULANT THERAPY
     Dosage: 300 U /HR IV
     Route: 042
     Dates: start: 20040106, end: 20040112
  2. DEXAMETHASONE [Concomitant]
  3. DILTIAZEM [Concomitant]
  4. DIGOXIN [Concomitant]
  5. MORPHINE [Concomitant]
  6. SOMA [Concomitant]
  7. DOCUSATE [Concomitant]
  8. RANITIDINE [Concomitant]

REACTIONS (5)
  - ACTIVATED PARTIAL THROMBOPLASTIN TIME PROLONGED [None]
  - LUNG NEOPLASM MALIGNANT [None]
  - MALIGNANT NEOPLASM PROGRESSION [None]
  - MENTAL STATUS CHANGES [None]
  - RECTAL HAEMORRHAGE [None]
